FAERS Safety Report 10585673 (Version 1)
Quarter: 2014Q4

REPORT INFORMATION
  Report Type: Spontaneous
  Country: IT (occurrence: IT)
  Receive Date: 20141114
  Receipt Date: 20141114
  Transmission Date: 20150529
  Serious: Yes (Other)
  Sender: FDA-Public Use
  Company Number: IT-WATSON-2014-24318

PATIENT
  Age: 74 Year
  Sex: Female

DRUGS (1)
  1. PIOGLITAZONE ACTAVIS [Suspect]
     Active Substance: PIOGLITAZONE
     Indication: TYPE 2 DIABETES MELLITUS
     Dosage: 30 MG, DAILY
     Route: 048
     Dates: start: 20141007, end: 20141009

REACTIONS (5)
  - Hyperglycaemia [Recovered/Resolved]
  - Tremor [Recovered/Resolved]
  - Delirium [Recovered/Resolved]
  - Headache [Recovered/Resolved]
  - Blood pressure orthostatic increased [Recovered/Resolved]

NARRATIVE: CASE EVENT DATE: 20141007
